FAERS Safety Report 7982014-8 (Version None)
Quarter: 2011Q4

REPORT INFORMATION
  Report Type: 
  Country: None (occurrence: None)
  Receive Date: 20111213
  Receipt Date: 20111206
  Transmission Date: 20120403
  Serious: Yes (Hospitalization, Other)
  Sender: FDA-Public Use
  Company Number: AUR-APU-2011-06067

PATIENT
  Age: 38 Year
  Sex: Female
  Weight: 63.5036 kg

DRUGS (4)
  1. CITALOPRAM HYDROBROMIDE [Suspect]
     Indication: DEPRESSION
     Dosage: (20 MG), ORAL  80 MG (40 MG, 2 IN 1 D), ORAL
     Route: 048
     Dates: start: 20101101
  2. CITALOPRAM HYDROBROMIDE [Suspect]
     Indication: ANXIETY
     Dosage: (20 MG), ORAL  80 MG (40 MG, 2 IN 1 D), ORAL
     Route: 048
     Dates: start: 20101101
  3. CITALOPRAM HYDROBROMIDE [Suspect]
     Indication: DEPRESSION
     Dosage: (20 MG), ORAL  80 MG (40 MG, 2 IN 1 D), ORAL
     Route: 048
     Dates: start: 20090501, end: 20101101
  4. CITALOPRAM HYDROBROMIDE [Suspect]
     Indication: ANXIETY
     Dosage: (20 MG), ORAL  80 MG (40 MG, 2 IN 1 D), ORAL
     Route: 048
     Dates: start: 20090501, end: 20101101

REACTIONS (1)
  - ANGLE CLOSURE GLAUCOMA [None]
